FAERS Safety Report 7483685-5 (Version None)
Quarter: 2011Q2

REPORT INFORMATION
  Report Type: 
  Country: None (occurrence: None)
  Receive Date: 20110517
  Receipt Date: 20110506
  Transmission Date: 20111010
  Serious: Yes (Other)
  Sender: FDA-Public Use
  Company Number: FR-NOVOPROD-327918

PATIENT
  Age: 63 Year
  Sex: Male
  Weight: 93 kg

DRUGS (6)
  1. VICTOZA [Suspect]
     Indication: TYPE 2 DIABETES MELLITUS
     Dosage: 0.6 MG, QD
     Route: 058
  2. VICTOZA [Suspect]
     Dosage: 1.2 MG, QD
     Route: 058
     Dates: start: 20110311, end: 20110421
  3. GLUCOR [Concomitant]
     Indication: DIABETES MELLITUS
     Dosage: 900 MG, QD
     Route: 048
  4. FENOFIBRATE [Concomitant]
     Indication: DYSLIPIDAEMIA
     Dosage: 145 MG, QD
     Route: 048
  5. METFORMIN HCL [Concomitant]
     Indication: DIABETES MELLITUS
     Dosage: 9000 MG, QD
     Route: 048
  6. REPAGLINIDE [Concomitant]
     Indication: DIABETES MELLITUS
     Dosage: 18 MG, QD
     Route: 048

REACTIONS (2)
  - ABDOMINAL PAIN [None]
  - LIPASE INCREASED [None]
